FAERS Safety Report 18970778 (Version 1)
Quarter: 2021Q1

REPORT INFORMATION
  Report Type: Other
  Country: NO (occurrence: NO)
  Receive Date: 20210304
  Receipt Date: 20210304
  Transmission Date: 20210420
  Serious: Yes (Hospitalization)
  Sender: FDA-Public Use
  Company Number: NO-GE HEALTHCARE LIFE SCIENCES-2021CSU001062

PATIENT

DRUGS (5)
  1. REMODULIN [Concomitant]
     Active Substance: TREPROSTINIL
     Indication: PULMONARY ARTERIAL HYPERTENSION
     Dosage: INFUSION PUMP
     Route: 058
  2. CLARISCAN [Suspect]
     Active Substance: GADOTERATE MEGLUMINE
     Indication: MAGNETIC RESONANCE IMAGING
     Dosage: 9 ML ADMINISTRATED BY HAND IN VENFLON IN THE RIGHT, SINGLE
     Route: 042
     Dates: start: 20210212, end: 20210212
  3. JAYDESS [Concomitant]
     Active Substance: LEVONORGESTREL
     Indication: DYSMENORRHOEA
     Dosage: 13.5 MG
  4. CLARISCAN [Suspect]
     Active Substance: GADOTERATE MEGLUMINE
     Indication: PRODUCT USED FOR UNKNOWN INDICATION
  5. REVATIO [Concomitant]
     Active Substance: SILDENAFIL CITRATE
     Indication: PULMONARY HYPERTENSION
     Dosage: 20 MG, TID

REACTIONS (3)
  - Vomiting [Recovering/Resolving]
  - Muscle twitching [Recovering/Resolving]
  - Erythema [Unknown]

NARRATIVE: CASE EVENT DATE: 20210212
